FAERS Safety Report 11326392 (Version 1)
Quarter: 2015Q3

REPORT INFORMATION
  Report Type: Spontaneous
  Country: FR (occurrence: FR)
  Receive Date: 20150731
  Receipt Date: 20150731
  Transmission Date: 20151125
  Serious: Yes (Hospitalization)
  Sender: FDA-Public Use
  Company Number: FR-SA-2015SA110490

PATIENT
  Age: 87 Year
  Sex: Male

DRUGS (10)
  1. PERINDOPRIL [Suspect]
     Active Substance: PERINDOPRIL
     Route: 048
  2. PROTHIADEN [Concomitant]
     Active Substance: DOTHIEPIN HYDROCHLORIDE
  3. PERINDOPRIL [Suspect]
     Active Substance: PERINDOPRIL
     Route: 048
  4. RILMENIDINE [Suspect]
     Active Substance: RILMENIDINE
     Dosage: ROUTE REPORTED AS RT
  5. DIFFU  K [Concomitant]
     Active Substance: POTASSIUM CHLORIDE
  6. SIMVASTATIN. [Concomitant]
     Active Substance: SIMVASTATIN
  7. LASILIX [Suspect]
     Active Substance: FUROSEMIDE
     Route: 065
  8. SOTALOL HYDROCHLORIDE. [Concomitant]
     Active Substance: SOTALOL HYDROCHLORIDE
  9. TEMESTA [Suspect]
     Active Substance: LORAZEPAM
     Dosage: TEMESTA, 1 MG COMPRESSED
     Route: 048
  10. ASPEGIC [Concomitant]
     Active Substance: ASPIRIN DL-LYSINE

REACTIONS (3)
  - Renal impairment [Unknown]
  - Fall [Recovered/Resolved]
  - Malaise [Recovered/Resolved]

NARRATIVE: CASE EVENT DATE: 20150610
